FAERS Safety Report 8235573-4 (Version None)
Quarter: 2012Q1

REPORT INFORMATION
  Report Type: 
  Country: None (occurrence: None)
  Receive Date: 20120326
  Receipt Date: 20120312
  Transmission Date: 20120608
  Serious: Yes (Hospitalization)
  Sender: FDA-Public Use
  Company Number: CA-ELI_LILLY_AND_COMPANY-CA201203006886

PATIENT
  Sex: Female

DRUGS (14)
  1. DILAUDID                                /CAN/ [Concomitant]
     Dosage: UNK
  2. PREDNISONE TAB [Concomitant]
     Dosage: 5 MG, QD
  3. LEVOTHYROXINE SODIUM [Concomitant]
     Dosage: 0.05 MG, QD
  4. ATENOLOL [Concomitant]
  5. ORENCIA [Concomitant]
     Indication: RHEUMATOID ARTHRITIS
     Dosage: 750 MG, OTHER
     Route: 042
     Dates: start: 20110801
  6. NAPROXEN [Concomitant]
  7. LYRICA [Concomitant]
     Dosage: 200 MG, QD
  8. PRAMIPEXOLE DIHYDROCHLORIDE [Concomitant]
  9. CALCIUM CARBONATE [Concomitant]
  10. NEXIUM [Concomitant]
  11. CYMBALTA [Suspect]
     Dosage: 60 MG, QD
  12. ARAVA [Concomitant]
     Dosage: 10 MG, QD
  13. AMILORIDE HYDROCHLORIDE [Concomitant]
  14. CALCITONIN SALMON [Concomitant]

REACTIONS (14)
  - URINARY TRACT INFECTION [None]
  - INFLAMMATION [None]
  - WOUND COMPLICATION [None]
  - VISUAL IMPAIRMENT [None]
  - CLOSTRIDIAL INFECTION [None]
  - VOMITING [None]
  - BURSITIS [None]
  - NAUSEA [None]
  - HAEMOGLOBIN DECREASED [None]
  - DIARRHOEA [None]
  - WEIGHT DECREASED [None]
  - ABDOMINAL PAIN [None]
  - SLEEP APNOEA SYNDROME [None]
  - ASTHENIA [None]
